FAERS Safety Report 17045628 (Version 1)
Quarter: 2019Q4

REPORT INFORMATION
  Report Type: Spontaneous
  Country: US (occurrence: US)
  Receive Date: 20191118
  Receipt Date: 20191118
  Transmission Date: 20200122
  Serious: Yes (Hospitalization)
  Sender: FDA-Public Use
  Company Number: US-BEH-2019109394

PATIENT
  Age: 53 Year
  Sex: Female

DRUGS (2)
  1. HIZENTRA [Suspect]
     Active Substance: HUMAN IMMUNOGLOBULIN G
     Indication: IMMUNODEFICIENCY COMMON VARIABLE
     Dosage: 5 GRAM, QW
     Route: 058
     Dates: start: 20180112
  2. HIZENTRA [Suspect]
     Active Substance: HUMAN IMMUNOGLOBULIN G
     Dosage: 10 GRAM, QW
     Route: 058
     Dates: start: 20180112

REACTIONS (2)
  - Arthralgia [Recovering/Resolving]
  - Pneumonia [Unknown]

NARRATIVE: CASE EVENT DATE: 201910
